FAERS Safety Report 19925287 (Version 4)
Quarter: 2023Q4

REPORT INFORMATION
  Report Type: Spontaneous
  Country: US (occurrence: None)
  Receive Date: 20211006
  Receipt Date: 20231204
  Transmission Date: 20240110
  Serious: Yes (Other)
  Sender: FDA-Public Use
  Company Number: 2021A736169

PATIENT
  Age: 77 Year
  Sex: Male
  Weight: 102.1 kg

DRUGS (1)
  1. CALQUENCE [Suspect]
     Active Substance: ACALABRUTINIB
     Indication: Chronic lymphocytic leukaemia
     Route: 048
     Dates: start: 2021

REACTIONS (8)
  - Atrial fibrillation [Unknown]
  - Gait disturbance [Not Recovered/Not Resolved]
  - Pain [Not Recovered/Not Resolved]
  - White blood cell count increased [Unknown]
  - Aphthous ulcer [Recovering/Resolving]
  - Blood potassium increased [Recovering/Resolving]
  - Hyperaesthesia [Not Recovered/Not Resolved]
  - Trigger points [Not Recovered/Not Resolved]

NARRATIVE: CASE EVENT DATE: 20210816
